FAERS Safety Report 8077513-7 (Version None)
Quarter: 2012Q1

REPORT INFORMATION
  Report Type: 
  Country: None (occurrence: None)
  Receive Date: 20120127
  Receipt Date: 20120126
  Transmission Date: 20120608
  Serious: Yes (Other)
  Sender: FDA-Public Use
  Company Number: US-BAYER-2012-008637

PATIENT
  Age: 36 Year
  Sex: Female

DRUGS (2)
  1. INTERFERON BETA-1B [Suspect]
     Indication: MULTIPLE SCLEROSIS
     Dosage: UNK UNK, QOD, WITH BETAJECT DEVICE
     Route: 058
     Dates: start: 20111229
  2. DILANTIN [Concomitant]
     Indication: CONVULSION
     Dosage: 350 MG, BID
     Route: 048

REACTIONS (4)
  - TOOTH FRACTURE [None]
  - FACIAL BONES FRACTURE [None]
  - DYSPHEMIA [None]
  - CONVULSION [None]
